FAERS Safety Report 25289194 (Version 5)
Quarter: 2025Q2

REPORT INFORMATION
  Report Type: Report from Study
  Country: CO (occurrence: CO)
  Receive Date: 20250509
  Receipt Date: 20250623
  Transmission Date: 20250717
  Serious: Yes (Disabling)
  Sender: SANOFI AVENTIS
  Company Number: CO-SA-2025SA133650

PATIENT
  Age: 31 Year
  Sex: Female
  Weight: 76 kg

DRUGS (9)
  1. DUPILUMAB [Suspect]
     Active Substance: DUPILUMAB
     Indication: Dermatitis atopic
     Route: 058
     Dates: start: 20250426, end: 20250426
  2. DUPILUMAB [Suspect]
     Active Substance: DUPILUMAB
     Dosage: 300 MG, QOW
     Route: 058
     Dates: start: 202505
  3. QUETIAPINE FUMARATE [Concomitant]
     Active Substance: QUETIAPINE FUMARATE
     Indication: Depression
     Dosage: 100 MG, QD
     Route: 048
  4. QUETIAPINE FUMARATE [Concomitant]
     Active Substance: QUETIAPINE FUMARATE
     Indication: Anxiety
  5. PREGABALIN [Concomitant]
     Active Substance: PREGABALIN
     Indication: Anxiety
     Dosage: 150 MG, Q8H
     Route: 048
  6. SERTRALINE HYDROCHLORIDE [Concomitant]
     Active Substance: SERTRALINE HYDROCHLORIDE
     Indication: Depression
     Dosage: 100 MG, QD (1 TABLET IN THE MORNING)
     Route: 048
  7. CLOBETASOL [Concomitant]
     Active Substance: CLOBETASOL
     Indication: Dermatitis atopic
     Dosage: UNK, QD
     Route: 003
     Dates: end: 202505
  8. CYCLOSPORINE [Concomitant]
     Active Substance: CYCLOSPORINE
     Indication: Injection site rash
     Dosage: 100 MG, Q12H
     Route: 048
     Dates: start: 20250506
  9. CROMUS [TACROLIMUS] [Concomitant]
     Indication: Dermatitis atopic
     Dosage: UNK, QD
     Dates: start: 202505

REACTIONS (28)
  - Abdominal pain [Recovered/Resolved]
  - Neurodermatitis [Recovered/Resolved]
  - Pruritus [Recovered/Resolved]
  - Injection site rash [Not Recovered/Not Resolved]
  - Rash [Recovered/Resolved]
  - Injection site pruritus [Recovered/Resolved]
  - Sleep disorder due to a general medical condition [Recovered/Resolved]
  - Injection site pain [Recovered/Resolved]
  - Injection site erythema [Not Recovered/Not Resolved]
  - Injection site swelling [Recovered/Resolved]
  - Gastrointestinal pain [Recovered/Resolved]
  - Rash erythematous [Not Recovered/Not Resolved]
  - Wound [Not Recovered/Not Resolved]
  - Condition aggravated [Recovered/Resolved]
  - Muscle spasms [Recovered/Resolved]
  - Loss of personal independence in daily activities [Not Recovered/Not Resolved]
  - Wound secretion [Recovered/Resolved]
  - Wound complication [Recovered/Resolved]
  - Wound haemorrhage [Recovered/Resolved]
  - Skin burning sensation [Recovered/Resolved]
  - Vomiting [Recovered/Resolved]
  - Flushing [Recovered/Resolved]
  - Rash maculo-papular [Recovered/Resolved]
  - Nausea [Recovered/Resolved]
  - Skin lesion [Not Recovered/Not Resolved]
  - Neurodermatitis [Not Recovered/Not Resolved]
  - Rash pruritic [Recovered/Resolved]
  - Urticaria [Recovered/Resolved]

NARRATIVE: CASE EVENT DATE: 20250101
